FAERS Safety Report 6537860-4 (Version None)
Quarter: 2010Q1

REPORT INFORMATION
  Report Type: 
  Country: None (occurrence: None)
  Receive Date: 20100112
  Receipt Date: 20100112
  Transmission Date: 20100710
  Serious: Yes (Hospitalization)
  Sender: FDA-Public Use
  Company Number: None

PATIENT
  Age: 61 Year
  Sex: Male

DRUGS (2)
  1. AMITRIPTYLINE HCL [Suspect]
     Indication: PAIN
     Dosage: 75 MG BID PO
     Route: 048
     Dates: start: 20091224, end: 20091228
  2. MORPHINE [Suspect]
     Indication: PAIN
     Dosage: 60 MG BID PO
     Route: 048
     Dates: start: 20091224

REACTIONS (6)
  - CONFUSIONAL STATE [None]
  - DRUG TOXICITY [None]
  - HALLUCINATION [None]
  - MIOSIS [None]
  - PHYSICAL EXAMINATION ABNORMAL [None]
  - SOMNOLENCE [None]
